FAERS Safety Report 11856022 (Version 1)
Quarter: 2015Q4

REPORT INFORMATION
  Report Type: Spontaneous
  Country: US (occurrence: US)
  Receive Date: 20151221
  Receipt Date: 20151221
  Transmission Date: 20160305
  Serious: Yes (Other)
  Sender: FDA-Public Use
  Company Number: US-BAYER-2015-487931

PATIENT
  Sex: Female

DRUGS (1)
  1. ALKA-SELTZER HEARTBURN RELIEFCHEWS STRAWBERRY [Suspect]
     Active Substance: CALCIUM CARBONATE
     Indication: GASTRIC DISORDER
     Dosage: UNK
     Dates: start: 201510

REACTIONS (1)
  - Myocardial infarction [None]

NARRATIVE: CASE EVENT DATE: 201510
